FAERS Safety Report 5783189-1 (Version None)
Quarter: 2008Q2

REPORT INFORMATION
  Report Type: 
  Country: None (occurrence: None)
  Receive Date: 20080624
  Receipt Date: 20080617
  Transmission Date: 20081010
  Serious: Yes (Other)
  Sender: FDA-Public Use
  Company Number: US-AMGEN-US287829

PATIENT
  Sex: Female

DRUGS (2)
  1. ARANESP [Suspect]
     Indication: RENAL TRANSPLANT
     Route: 065
     Dates: start: 20061201
  2. CELLCEPT [Concomitant]

REACTIONS (3)
  - ANAEMIA [None]
  - GLOMERULAR FILTRATION RATE DECREASED [None]
  - GRAFT COMPLICATION [None]
